FAERS Safety Report 6614435-X (Version None)
Quarter: 2010Q1

REPORT INFORMATION
  Report Type: 
  Country: None (occurrence: None)
  Receive Date: 20100303
  Receipt Date: 20100303
  Transmission Date: 20100710
  Serious: Yes (Other)
  Sender: FDA-Public Use
  Company Number: None

PATIENT
  Age: 63 Year
  Sex: Female
  Weight: 55.2 kg

DRUGS (7)
  1. VORINOSTAT 100MG MERCK [Suspect]
     Indication: NON-SMALL CELL LUNG CANCER
     Dosage: 100MG QD DAYS 1-14 PO
     Route: 048
     Dates: start: 20100216, end: 20100226
  2. VELCADE [Suspect]
     Indication: NON-SMALL CELL LUNG CANCER
     Dosage: 1.3MG/M2 DAYS 1, 4, 8, 11 IV
     Route: 042
     Dates: start: 20100216, end: 20100301
  3. CELEXA [Concomitant]
  4. PERCOCET [Concomitant]
  5. LORAZEPAM [Concomitant]
  6. COMPAZINE [Concomitant]
  7. CALM HERBAL SUPPLEMENT [Concomitant]

REACTIONS (3)
  - CONFUSIONAL STATE [None]
  - DELIRIUM [None]
  - HALLUCINATION [None]
